FAERS Safety Report 12140772 (Version 1)
Quarter: 2016Q1

REPORT INFORMATION
  Report Type: Spontaneous
  Country: US (occurrence: None)
  Receive Date: 20160302
  Receipt Date: 20160302
  Transmission Date: 20160526
  Serious: No
  Sender: FDA-Public Use
  Company Number: None

PATIENT
  Age: 47 Year
  Sex: Female

DRUGS (1)
  1. IMATINIB [Suspect]
     Active Substance: IMATINIB
     Indication: MASTOCYTOSIS
     Route: 048
     Dates: start: 20160210, end: 20160228

REACTIONS (7)
  - Rash [None]
  - Lip blister [None]
  - Diarrhoea [None]
  - Product substitution issue [None]
  - Blood pressure increased [None]
  - Heart rate increased [None]
  - Chest pain [None]

NARRATIVE: CASE EVENT DATE: 20160211
